FAERS Safety Report 24837295 (Version 3)
Quarter: 2025Q1

REPORT INFORMATION
  Report Type: Report from Study
  Country: CN (occurrence: CN)
  Receive Date: 20250113
  Receipt Date: 20250316
  Transmission Date: 20250409
  Serious: Yes (Death)
  Sender: Vantive US Healthcare
  Company Number: CN-VANTIVE-2025VAN000041

PATIENT
  Age: 61 Year
  Sex: Male
  Weight: 65 kg

DRUGS (25)
  1. SODIUM CHLORIDE\SODIUM CITRATE, UNSPECIFIED FORM [Suspect]
     Active Substance: SODIUM CHLORIDE\SODIUM CITRATE, UNSPECIFIED FORM
     Indication: Chest pain
     Route: 042
     Dates: start: 20241230, end: 20241230
  2. SODIUM CHLORIDE\SODIUM CITRATE, UNSPECIFIED FORM [Suspect]
     Active Substance: SODIUM CHLORIDE\SODIUM CITRATE, UNSPECIFIED FORM
     Indication: Headache
     Route: 042
     Dates: start: 20241230, end: 20241231
  3. MAGNESIUM CHLORIDE\POTASSIUM CHLORIDE\SODIUM BICARBONATE\SODIUM CHLORI [Suspect]
     Active Substance: MAGNESIUM CHLORIDE\POTASSIUM CHLORIDE\SODIUM BICARBONATE\SODIUM CHLORIDE\SODIUM PHOSPHATE, DIBASIC
     Indication: Chest pain
     Route: 042
     Dates: start: 20241230, end: 20241231
  4. MAGNESIUM CHLORIDE\POTASSIUM CHLORIDE\SODIUM BICARBONATE\SODIUM CHLORI [Suspect]
     Active Substance: MAGNESIUM CHLORIDE\POTASSIUM CHLORIDE\SODIUM BICARBONATE\SODIUM CHLORIDE\SODIUM PHOSPHATE, DIBASIC
     Indication: Headache
  5. UNSPECIFIED INGREDIENT [Suspect]
     Active Substance: UNSPECIFIED INGREDIENT
     Route: 065
  6. IPRATROPIUM BROMIDE [Concomitant]
     Active Substance: IPRATROPIUM BROMIDE
     Indication: Wheezing
     Route: 045
     Dates: start: 20241028, end: 20241231
  7. TERBUTALINE [Concomitant]
     Active Substance: TERBUTALINE
     Indication: Wheezing
     Route: 045
     Dates: start: 20241028, end: 20241231
  8. AMBROXOL [Concomitant]
     Active Substance: AMBROXOL
     Indication: Productive cough
     Route: 042
     Dates: start: 20241230, end: 20241231
  9. IVABRADINE HYDROCHLORIDE [Concomitant]
     Active Substance: IVABRADINE HYDROCHLORIDE
     Route: 048
     Dates: start: 20241113, end: 20241231
  10. ACETYLCYSTEINE [Concomitant]
     Active Substance: ACETYLCYSTEINE
     Indication: Productive cough
     Route: 048
     Dates: start: 20241114, end: 20241231
  11. FERRIC POLYSACCHARIDE COMPLEX [Concomitant]
     Active Substance: FERRIC POLYSACCHARIDE COMPLEX
     Indication: Anaemia
     Route: 048
     Dates: start: 20241116, end: 20241231
  12. SACCHAROMYCES CEREVISIAE [Concomitant]
     Active Substance: SACCHAROMYCES CEREVISIAE
     Indication: Functional gastrointestinal disorder
     Route: 048
     Dates: start: 20241119, end: 20241231
  13. ATORVASTATIN [Concomitant]
     Active Substance: ATORVASTATIN
     Indication: Hyperlipidaemia
     Route: 048
     Dates: start: 20241130, end: 20241231
  14. ATORVASTATIN [Concomitant]
     Active Substance: ATORVASTATIN
     Indication: Coronary artery disease
  15. ALBUMIN HUMAN [Concomitant]
     Active Substance: ALBUMIN HUMAN
     Indication: Supplementation therapy
     Route: 042
     Dates: start: 20241204, end: 20241231
  16. CALCIUM CARBONATE\CHOLECALCIFEROL [Concomitant]
     Active Substance: CALCIUM CARBONATE\CHOLECALCIFEROL
     Indication: Mineral supplementation
     Route: 048
     Dates: start: 20241220, end: 20241231
  17. SODIUM BICARBONATE [Concomitant]
     Active Substance: SODIUM BICARBONATE
     Indication: Acid base balance
     Route: 048
     Dates: start: 20241222, end: 20241231
  18. TOLVAPTAN [Concomitant]
     Active Substance: TOLVAPTAN
     Indication: Lipids increased
     Route: 048
     Dates: start: 20241223, end: 20241231
  19. TOLVAPTAN [Concomitant]
     Active Substance: TOLVAPTAN
     Indication: Diuretic therapy
  20. TOLVAPTAN [Concomitant]
     Active Substance: TOLVAPTAN
     Indication: Blood sodium increased
  21. Enteral nutritional emulsion (SP) [Concomitant]
     Indication: Nutritional supplementation
     Route: 048
     Dates: start: 20241223, end: 20241231
  22. BERAPROST SODIUM [Concomitant]
     Active Substance: BERAPROST SODIUM
     Indication: Renal failure
     Route: 048
     Dates: start: 20241224, end: 20241231
  23. Compound alpha ketoacid [Concomitant]
     Indication: Renal disorder prophylaxis
     Route: 048
     Dates: start: 20241224, end: 20241231
  24. Human erythropoietin [Concomitant]
     Indication: Anaemia
     Route: 058
     Dates: start: 20241224, end: 20241231
  25. PIPERACILLIN AND TAZOBACTAM [Concomitant]
     Active Substance: PIPERACILLIN SODIUM\TAZOBACTAM SODIUM
     Indication: Infection
     Route: 042
     Dates: start: 20241227, end: 20241231

REACTIONS (2)
  - Metabolic acidosis [Fatal]
  - Hypotension [Fatal]

NARRATIVE: CASE EVENT DATE: 20241231
